FAERS Safety Report 6135542-4 (Version None)
Quarter: 2009Q1

REPORT INFORMATION
  Report Type: 
  Country: None (occurrence: None)
  Receive Date: 20090327
  Receipt Date: 20090318
  Transmission Date: 20090719
  Serious: Yes (Life-Threatening, Hospitalization)
  Sender: FDA-Public Use
  Company Number: B0567104A

PATIENT
  Age: 59 Year
  Sex: Female

DRUGS (5)
  1. ORBENINE [Suspect]
     Indication: SUPERINFECTION
     Route: 048
     Dates: start: 20081031, end: 20081104
  2. AMOXICILLIN AND CLAVULANATE POTASSIUM [Suspect]
     Indication: SUPERINFECTION
     Route: 048
     Dates: start: 20081103, end: 20081104
  3. BRIVUDINE [Suspect]
     Indication: HERPES ZOSTER
     Route: 048
     Dates: start: 20081015, end: 20081022
  4. IBUPROFEN [Suspect]
     Indication: SUPERINFECTION
     Route: 048
     Dates: start: 20081031, end: 20081104
  5. OMEPRAZOLE [Concomitant]
     Indication: PROPHYLAXIS
     Route: 048
     Dates: start: 20081003

REACTIONS (8)
  - AGRANULOCYTOSIS [None]
  - BONE MARROW FAILURE [None]
  - BREAST ABSCESS [None]
  - COAGULOPATHY [None]
  - HYPERBILIRUBINAEMIA [None]
  - RENAL FAILURE ACUTE [None]
  - SEPTIC RASH [None]
  - ULCER [None]
